FAERS Safety Report 7746783-4 (Version None)
Quarter: 2011Q3

REPORT INFORMATION
  Report Type: 
  Country: None (occurrence: None)
  Receive Date: 20110825
  Receipt Date: 20110519
  Transmission Date: 20111222
  Serious: No
  Sender: FDA-Public Use
  Company Number: 328675

PATIENT
  Age: 46 Year
  Sex: Female

DRUGS (3)
  1. VICTOZA [Suspect]
     Indication: TYPE 2 DIABETES MELLITUS
     Dosage: 0.6 MG, QD, SUBCUTANEOUS
     Route: 058
     Dates: start: 20110513
  2. METFORMIN HCL [Concomitant]
  3. LEXAPRO [Concomitant]

REACTIONS (3)
  - PALPITATIONS [None]
  - DRY MOUTH [None]
  - THIRST [None]
